FAERS Safety Report 4685342-7 (Version None)
Quarter: 2005Q2

REPORT INFORMATION
  Report Type: 
  Country: None (occurrence: None)
  Receive Date: 20050608
  Receipt Date: 20041216
  Transmission Date: 20051028
  Serious: Yes (Other)
  Sender: FDA-Public Use
  Company Number: FR-ROCHE-389543

PATIENT
  Age: 40 Year
  Sex: Female
  Weight: 40 kg

DRUGS (5)
  1. PEGASYS [Suspect]
     Indication: HEPATITIS C
     Route: 058
     Dates: start: 20040101, end: 20041130
  2. COPEGUS [Concomitant]
     Indication: HEPATITIS C
     Route: 048
     Dates: start: 20040101, end: 20041130
  3. VIRACEPT [Concomitant]
     Route: 048
     Dates: start: 20030615
  4. EPIVIR [Concomitant]
     Route: 048
     Dates: start: 20030615
  5. VIREAD [Concomitant]
     Route: 048
     Dates: start: 20030615

REACTIONS (1)
  - RETINAL NEOVASCULARISATION [None]
